FAERS Safety Report 13163868 (Version 3)
Quarter: 2017Q1

REPORT INFORMATION
  Report Type: Spontaneous
  Country: JP (occurrence: JP)
  Receive Date: 20170130
  Receipt Date: 20170228
  Transmission Date: 20170428
  Serious: Yes (Other)
  Sender: FDA-Public Use
  Company Number: PHJP2017JP002953

PATIENT
  Age: 63 Year
  Sex: Female

DRUGS (8)
  1. ZOMETA [Suspect]
     Active Substance: ZOLEDRONIC ACID
     Route: 041
     Dates: start: 201605
  2. TS-1 [Concomitant]
     Active Substance: GIMERACIL\OTERACIL\TEGAFUR
     Indication: BREAST CANCER
     Dosage: UNK
     Route: 065
     Dates: start: 20080402, end: 20100218
  3. ZOMETA [Suspect]
     Active Substance: ZOLEDRONIC ACID
     Indication: METASTASES TO BONE
     Route: 041
     Dates: start: 20080402, end: 20100218
  4. ZOMETA [Suspect]
     Active Substance: ZOLEDRONIC ACID
     Route: 041
     Dates: start: 20100305
  5. FEMARA [Suspect]
     Active Substance: LETROZOLE
     Indication: BREAST CANCER
     Route: 048
     Dates: start: 20100305
  6. XELODA [Concomitant]
     Active Substance: CAPECITABINE
     Indication: BREAST CANCER
     Dosage: UNK
     Route: 065
     Dates: start: 201605
  7. RANMARK [Concomitant]
     Active Substance: DENOSUMAB
     Indication: METASTASES TO BONE
     Route: 065
     Dates: start: 20120704
  8. FEMARA [Suspect]
     Active Substance: LETROZOLE
     Route: 048
     Dates: start: 20120704, end: 20140707

REACTIONS (7)
  - Malignant neoplasm progression [Unknown]
  - Pathological fracture [Unknown]
  - Metastases to liver [Unknown]
  - Decreased appetite [Unknown]
  - Vomiting [Unknown]
  - Femur fracture [Unknown]
  - Adrenal neoplasm [Unknown]

NARRATIVE: CASE EVENT DATE: 20130911
